FAERS Safety Report 20079320 (Version 28)
Quarter: 2023Q1

REPORT INFORMATION
  Report Type: Spontaneous
  Country: CA (occurrence: CA)
  Receive Date: 20211117
  Receipt Date: 20230325
  Transmission Date: 20230417
  Serious: Yes (Hospitalization, Other)
  Sender: FDA-Public Use
  Company Number: CA-CELLTRION INC.-2021CA015379

PATIENT

DRUGS (44)
  1. INFLECTRA [Suspect]
     Active Substance: INFLIXIMAB-DYYB
     Indication: Psoriatic arthropathy
     Dosage: 500 MG, Q (EVERY) 0, 2, 6 WEEKS, THEN EVERY 8 WEEKS
     Route: 042
     Dates: start: 20181016, end: 20190514
  2. INFLECTRA [Suspect]
     Active Substance: INFLIXIMAB-DYYB
     Dosage: 675 MG (7.5 MG/KG), EVERY 8 WEEKS
     Route: 042
     Dates: start: 20190709, end: 20200825
  3. INFLECTRA [Suspect]
     Active Substance: INFLIXIMAB-DYYB
     Dosage: 800 MG, EVERY 6 WEEKS
     Route: 042
     Dates: start: 20201020, end: 20210407
  4. INFLECTRA [Suspect]
     Active Substance: INFLIXIMAB-DYYB
     Dosage: 700 MG, EVERY 4 WEEKS (ON HOLD AS OF 18AUG2021)
     Route: 042
     Dates: start: 20210511
  5. INFLECTRA [Suspect]
     Active Substance: INFLIXIMAB-DYYB
     Dosage: 700 MG, EVERY 4 WEEKS
     Route: 042
     Dates: start: 20210511, end: 20210720
  6. INFLECTRA [Suspect]
     Active Substance: INFLIXIMAB-DYYB
     Dosage: 700 MG, EVERY 4 WEEKS
     Route: 042
     Dates: start: 20210720
  7. INFLECTRA [Suspect]
     Active Substance: INFLIXIMAB-DYYB
     Dosage: 700 MG, EVERY 4 WEEKS
     Route: 042
     Dates: start: 20220208
  8. INFLECTRA [Suspect]
     Active Substance: INFLIXIMAB-DYYB
     Dosage: 700 MG, EVERY 4 WEEKS
     Route: 042
     Dates: start: 20220310
  9. INFLECTRA [Suspect]
     Active Substance: INFLIXIMAB-DYYB
     Dosage: 700 MG, EVERY 4 WEEKS
     Route: 042
     Dates: start: 20220405
  10. INFLECTRA [Suspect]
     Active Substance: INFLIXIMAB-DYYB
     Dosage: 700 MG, EVERY 4 WEEKS
     Route: 042
     Dates: start: 20220505
  11. INFLECTRA [Suspect]
     Active Substance: INFLIXIMAB-DYYB
     Dosage: 700 MG, EVERY 4 WEEKS
     Route: 042
     Dates: start: 20220601
  12. INFLECTRA [Suspect]
     Active Substance: INFLIXIMAB-DYYB
     Dosage: 700 MG, EVERY 4 WEEKS
     Route: 042
     Dates: start: 20220629
  13. INFLECTRA [Suspect]
     Active Substance: INFLIXIMAB-DYYB
     Dosage: 700 MG, EVERY 4 WEEKS
     Route: 042
     Dates: start: 20220726
  14. INFLECTRA [Suspect]
     Active Substance: INFLIXIMAB-DYYB
     Dosage: 700 MG, EVERY 4 WEEKS
     Route: 042
     Dates: start: 20220824
  15. INFLECTRA [Suspect]
     Active Substance: INFLIXIMAB-DYYB
     Dosage: 700 MG, EVERY 4 WEEKS
     Route: 042
     Dates: start: 20220922
  16. INFLECTRA [Suspect]
     Active Substance: INFLIXIMAB-DYYB
     Dosage: 700 MG, EVERY 4 WEEKS
     Route: 042
     Dates: start: 20221020
  17. INFLECTRA [Suspect]
     Active Substance: INFLIXIMAB-DYYB
     Dosage: 700 MG, EVERY 4 WEEKS
     Route: 042
     Dates: start: 20221117
  18. INFLECTRA [Suspect]
     Active Substance: INFLIXIMAB-DYYB
     Dosage: 700 MG, EVERY 4 WEEKS
     Route: 042
     Dates: start: 20221222
  19. INFLECTRA [Suspect]
     Active Substance: INFLIXIMAB-DYYB
     Dosage: 700 MG, EVERY 4 WEEKS
     Route: 042
     Dates: start: 20230119
  20. INFLECTRA [Suspect]
     Active Substance: INFLIXIMAB-DYYB
     Dosage: 700 MG, EVERY 4 WEEKS
     Route: 042
     Dates: start: 20230215
  21. INFLECTRA [Suspect]
     Active Substance: INFLIXIMAB-DYYB
     Dosage: 700 MG, EVERY 4 WEEKS
     Route: 042
     Dates: start: 20230316
  22. APO ATORVASTATIN [ATORVASTATIN CALCIUM PROPYLENE GLYCOL SOLVATE] [Concomitant]
     Dosage: UNK
  23. ASPIRIN [Concomitant]
     Active Substance: ASPIRIN
     Dosage: 81 MG, 1X/DAY
     Route: 048
     Dates: start: 20220830
  24. VITAMIN B12 [Concomitant]
     Active Substance: CYANOCOBALAMIN
     Dosage: 1 DF DOSE UNK
     Route: 030
  25. CYMBALTA [Concomitant]
     Active Substance: DULOXETINE HYDROCHLORIDE
     Dosage: UNK
  26. DOMPERIDONE [Concomitant]
     Active Substance: DOMPERIDONE
     Dosage: 10 MG, (BEFORE MEALS)
     Route: 065
  27. ESCITALOPRAM [Concomitant]
     Active Substance: ESCITALOPRAM OXALATE
     Dosage: UNK
  28. LEVOTHYROXINE [Concomitant]
     Active Substance: LEVOTHYROXINE
     Dosage: UNK
  29. EZETIMIBE [Concomitant]
     Active Substance: EZETIMIBE
     Dosage: UNK
  30. FERAMAX [Concomitant]
     Active Substance: IRON\POLYSACCHARIDES
     Dosage: 1 DF DOSE UNK
     Route: 048
  31. FIASP [Concomitant]
     Active Substance: INSULIN ASPART
     Dosage: UNK INSULIN
  32. FOLIC ACID [Concomitant]
     Active Substance: FOLIC ACID
     Dosage: UNK
     Dates: start: 2022
  33. GAS-X [Concomitant]
     Active Substance: DIMETHICONE
     Dosage: UNK
  34. HYDROCHLOROTHIAZIDE [Concomitant]
     Active Substance: HYDROCHLOROTHIAZIDE
     Dosage: UNK
  35. METHOTREXATE [Concomitant]
     Active Substance: METHOTREXATE
     Dosage: 25 MG, WEEKLY
     Route: 065
     Dates: start: 2014
  36. PANTOPRAZOLE SODIUM [Concomitant]
     Active Substance: PANTOPRAZOLE SODIUM
     Dosage: UNK
  37. PREGABALIN [Concomitant]
     Active Substance: PREGABALIN
     Dosage: 50 MG, 2X/DAY, 2 CAPS BID
     Route: 065
     Dates: start: 201803
  38. RAMIPRIL [Concomitant]
     Active Substance: RAMIPRIL
     Dosage: UNK
  39. SALAGEN [Concomitant]
     Active Substance: PILOCARPINE HYDROCHLORIDE
     Dosage: 5 MG, 1X/DAY
     Dates: start: 201803
  40. SALAGEN [Concomitant]
     Active Substance: PILOCARPINE HYDROCHLORIDE
     Dosage: 5 MG, 1X/DAY, MAY TAKE UP TO 3 PER DAY
     Route: 065
  41. SENOKOT [Concomitant]
     Active Substance: SENNOSIDES
     Dosage: UNK
  42. DILTIAZEM HYDROCHLORIDE [Concomitant]
     Active Substance: DILTIAZEM HYDROCHLORIDE
     Dosage: UNK
  43. TRESIBA [Concomitant]
     Active Substance: INSULIN DEGLUDEC
     Dosage: UNK  INSULIN
  44. PILOCARPINE [Concomitant]
     Active Substance: PILOCARPINE
     Dosage: UNK

REACTIONS (24)
  - Sepsis [Unknown]
  - Splenic infarction [Recovering/Resolving]
  - Thrombosis [Unknown]
  - Skin cancer [Not Recovered/Not Resolved]
  - Crohn^s disease [Recovering/Resolving]
  - Urinary tract infection [Not Recovered/Not Resolved]
  - Blood iron decreased [Recovering/Resolving]
  - Anaemia [Recovering/Resolving]
  - Tooth disorder [Not Recovered/Not Resolved]
  - Psoriasis [Not Recovered/Not Resolved]
  - Arthralgia [Not Recovered/Not Resolved]
  - Weight decreased [Unknown]
  - Poor venous access [Unknown]
  - Vein collapse [Unknown]
  - Contusion [Unknown]
  - Fatigue [Recovering/Resolving]
  - Condition aggravated [Not Recovered/Not Resolved]
  - Malaise [Unknown]
  - Back pain [Unknown]
  - Off label use [Unknown]
  - Off label use [Unknown]
  - Inappropriate schedule of product administration [Unknown]
  - Off label use [Unknown]
  - Intentional product use issue [Unknown]

NARRATIVE: CASE EVENT DATE: 20190709
